FAERS Safety Report 9129768 (Version 1)
Quarter: 2013Q1

REPORT INFORMATION
  Report Type: Spontaneous
  Country: JP (occurrence: JP)
  Receive Date: 20130228
  Receipt Date: 20130228
  Transmission Date: 20140127
  Serious: Yes (Other)
  Sender: FDA-Public Use
  Company Number: JP-009507513-1302JPN012048

PATIENT
  Age: 78 Year
  Sex: Female

DRUGS (1)
  1. JANUVIA TABLETS 25MG [Suspect]
     Route: 048

REACTIONS (2)
  - Ventricular fibrillation [Unknown]
  - Hypokalaemia [Unknown]
